FAERS Safety Report 4877062-0 (Version None)
Quarter: 2006Q1

REPORT INFORMATION
  Report Type: 
  Country: None (occurrence: None)
  Receive Date: 20060110
  Receipt Date: 20060103
  Transmission Date: 20060701
  Serious: Yes (Hospitalization)
  Sender: FDA-Public Use
  Company Number: GB-MERCK-0601GBR00017

PATIENT
  Age: 74 Year
  Sex: Male

DRUGS (2)
  1. ZOCOR [Suspect]
     Indication: BLOOD CHOLESTEROL INCREASED
     Route: 048
     Dates: start: 20050301, end: 20051101
  2. GLYBURIDE [Concomitant]
     Route: 065

REACTIONS (1)
  - PAIN IN EXTREMITY [None]
